FAERS Safety Report 17821221 (Version 1)
Quarter: 2020Q2

REPORT INFORMATION
  Report Type: Report from Study
  Country: CO (occurrence: CO)
  Receive Date: 20200525
  Receipt Date: 20200525
  Transmission Date: 20200714
  Serious: Yes (Hospitalization)
  Sender: FDA-Public Use
  Company Number: PHHY2019CO102683

PATIENT
  Sex: Female

DRUGS (1)
  1. JADENU [Suspect]
     Active Substance: DEFERASIROX
     Indication: SICKLE CELL DISEASE
     Dosage: 360 MG, QD
     Route: 048
     Dates: start: 20190413

REACTIONS (3)
  - Headache [Unknown]
  - Sickle cell anaemia with crisis [Unknown]
  - Pain in extremity [Unknown]
